FAERS Safety Report 21065146 (Version 1)
Quarter: 2022Q3

REPORT INFORMATION
  Report Type: Spontaneous
  Country: US (occurrence: None)
  Receive Date: 20220711
  Receipt Date: 20220711
  Transmission Date: 20221027
  Serious: Yes (Life-Threatening, Other)
  Sender: FDA-Public Use
  Company Number: None

PATIENT
  Age: 63 Year
  Sex: Male
  Weight: 78.7 kg

DRUGS (1)
  1. CILGAVIMAB\TIXAGEVIMAB [Suspect]
     Active Substance: CILGAVIMAB\TIXAGEVIMAB
     Indication: COVID-19
     Dates: start: 20220617

REACTIONS (11)
  - Dizziness [None]
  - Hypotension [None]
  - Apnoea [None]
  - Unresponsive to stimuli [None]
  - Tachypnoea [None]
  - Body temperature decreased [None]
  - Throat irritation [None]
  - Dyspnoea [None]
  - Chills [None]
  - Headache [None]
  - Stress [None]

NARRATIVE: CASE EVENT DATE: 20220617
